FAERS Safety Report 14044726 (Version 1)
Quarter: 2017Q4

REPORT INFORMATION
  Report Type: Report from Study
  Country: CA (occurrence: CA)
  Receive Date: 20171005
  Receipt Date: 20171005
  Transmission Date: 20180321
  Serious: Yes (Death, Other)
  Sender: FDA-Public Use
  Company Number: CA-AMGEN-CANSL2017149727

PATIENT
  Sex: Male
  Weight: 78.4 kg

DRUGS (1)
  1. VECTIBIX [Suspect]
     Active Substance: PANITUMUMAB
     Indication: COLORECTAL CANCER METASTATIC
     Dosage: 470 MG, Q2WK
     Route: 042
     Dates: start: 20170823

REACTIONS (1)
  - Death [Fatal]

NARRATIVE: CASE EVENT DATE: 20170902
